FAERS Safety Report 18277864 (Version 1)
Quarter: 2020Q3

REPORT INFORMATION
  Report Type: Spontaneous
  Country: US (occurrence: US)
  Receive Date: 20200917
  Receipt Date: 20200917
  Transmission Date: 20201103
  Serious: No
  Sender: FDA-Public Use
  Company Number: US-ELI_LILLY_AND_COMPANY-US202009007641

PATIENT
  Age: 59 Year
  Sex: Female

DRUGS (1)
  1. CYMBALTA [Suspect]
     Active Substance: DULOXETINE HYDROCHLORIDE
     Indication: MAJOR DEPRESSION
     Dosage: 20 MG, DAILY
     Route: 048
     Dates: start: 202009

REACTIONS (3)
  - Insomnia [Not Recovered/Not Resolved]
  - Somnolence [Recovered/Resolved]
  - Genital herpes [Recovered/Resolved]

NARRATIVE: CASE EVENT DATE: 202009
